FAERS Safety Report 4723694-X (Version None)
Quarter: 2005Q3

REPORT INFORMATION
  Report Type: 
  Country: None (occurrence: None)
  Receive Date: 20050720
  Receipt Date: 20050720
  Transmission Date: 20060218
  Serious: Yes (Hospitalization)
  Sender: FDA-Public Use
  Company Number: None

PATIENT
  Age: 77 Year
  Sex: Male
  Weight: 78.9259 kg

DRUGS (5)
  1. DIGOXIN [Suspect]
     Dosage: 0.25 MG PO QD
     Route: 048
  2. AMIODARONE [Suspect]
     Dosage: 200 MG PO QD
     Route: 048
  3. WARFARIN SODIUM [Suspect]
  4. GATIFLOXACIN [Suspect]
  5. SIMVASTATIN [Suspect]

REACTIONS (7)
  - DEHYDRATION [None]
  - HYPERGLYCAEMIA [None]
  - INTERNATIONAL NORMALISED RATIO INCREASED [None]
  - MENTAL STATUS CHANGES [None]
  - NAUSEA [None]
  - THERAPEUTIC AGENT TOXICITY [None]
  - VOMITING [None]
